FAERS Safety Report 12925781 (Version 3)
Quarter: 2017Q2

REPORT INFORMATION
  Report Type: Spontaneous
  Country: US (occurrence: US)
  Receive Date: 20161109
  Receipt Date: 20170412
  Transmission Date: 20170830
  Serious: Yes (Other)
  Sender: FDA-Public Use
  Company Number: US-009507513-1611USA001561

PATIENT
  Sex: Male
  Weight: 68.03 kg

DRUGS (1)
  1. PROPECIA [Suspect]
     Active Substance: FINASTERIDE
     Indication: ANDROGENETIC ALOPECIA
     Dosage: 1 MG, QD
     Route: 048
     Dates: start: 20020414, end: 20030908

REACTIONS (10)
  - Hernia [Unknown]
  - Erectile dysfunction [Not Recovered/Not Resolved]
  - Hypertension [Unknown]
  - Benign prostatic hyperplasia [Unknown]
  - Drug ineffective [Unknown]
  - Libido decreased [Not Recovered/Not Resolved]
  - Intentional overdose [Unknown]
  - Gastrooesophageal reflux disease [Unknown]
  - Sexual dysfunction [Not Recovered/Not Resolved]
  - Orgasmic sensation decreased [Not Recovered/Not Resolved]

NARRATIVE: CASE EVENT DATE: 2002
